FAERS Safety Report 8337299-5 (Version None)
Quarter: 2012Q2

REPORT INFORMATION
  Report Type: 
  Country: None (occurrence: None)
  Receive Date: 20120504
  Receipt Date: 20120502
  Transmission Date: 20120825
  Serious: No
  Sender: FDA-Public Use
  Company Number: US-PFIZER INC-2012108127

PATIENT
  Sex: Female
  Weight: 13.605 kg

DRUGS (1)
  1. CHILDREN'S ADVIL [Suspect]
     Indication: PYREXIA
     Dosage: 100 MG, DAILY
     Dates: start: 20120128, end: 20120129

REACTIONS (1)
  - HYPERSENSITIVITY [None]
